FAERS Safety Report 16927641 (Version 3)
Quarter: 2020Q3

REPORT INFORMATION
  Report Type: Spontaneous
  Country: US (occurrence: US)
  Receive Date: 20191016
  Receipt Date: 20200826
  Transmission Date: 20201102
  Serious: Yes (Other)
  Sender: FDA-Public Use
  Company Number: NVSC2019US001973

PATIENT
  Sex: Female

DRUGS (2)
  1. OTEZLA [Concomitant]
     Active Substance: APREMILAST
     Indication: PRODUCT USED FOR UNKNOWN INDICATION
     Dosage: UNK
     Route: 065
  2. COSENTYX [Suspect]
     Active Substance: SECUKINUMAB
     Indication: PSORIASIS
     Dosage: 150 MG, QW
     Route: 058
     Dates: start: 201909

REACTIONS (4)
  - Hypersensitivity [Unknown]
  - Conjunctivitis [Unknown]
  - Cellulitis [Unknown]
  - Pain [Unknown]
